FAERS Safety Report 10672376 (Version 2)
Quarter: 2014Q4

REPORT INFORMATION
  Report Type: Spontaneous
  Country: BR (occurrence: BR)
  Receive Date: 20141223
  Receipt Date: 20141223
  Transmission Date: 20150529
  Serious: Yes (Hospitalization, Other)
  Sender: FDA-Public Use
  Company Number: BR-SA-2014SA066860

PATIENT
  Age: 38 Year
  Sex: Female
  Weight: 52 kg

DRUGS (5)
  1. FOLIC ACID. [Concomitant]
     Active Substance: FOLIC ACID
     Indication: PREGNANCY
     Dosage: START DATE: SINCE 03 MONTHS
     Route: 048
  2. VITAMIN B12 [Concomitant]
     Active Substance: CYANOCOBALAMIN
     Indication: PREGNANCY
     Dosage: START DATE: SINCE 3 MONTHS
     Route: 048
  3. PROGESTERONE. [Concomitant]
     Active Substance: PROGESTERONE
     Indication: PREGNANCY
     Route: 067
     Dates: start: 20140315
  4. ESTROGEN NOS [Concomitant]
     Active Substance: ESTROGENS
     Indication: PREGNANCY
     Route: 048
     Dates: start: 20140315
  5. CLEXANE [Suspect]
     Active Substance: ENOXAPARIN SODIUM
     Indication: HYPERCOAGULATION
     Dosage: DOSE: 1 ONCE A DAY SAFETY LOCK 40 MG SYRINGES
     Route: 058
     Dates: start: 20140315, end: 20141104

REACTIONS (7)
  - Injection site haemorrhage [Recovered/Resolved]
  - Uterine haemorrhage [Unknown]
  - Exposure during pregnancy [Unknown]
  - Contusion [Recovering/Resolving]
  - Injection site haematoma [Recovered/Resolved]
  - Injection site nodule [Recovered/Resolved]
  - Premature baby [Unknown]

NARRATIVE: CASE EVENT DATE: 201405
